FAERS Safety Report 5507660-2 (Version None)
Quarter: 2007Q4

REPORT INFORMATION
  Report Type: 
  Country: None (occurrence: None)
  Receive Date: 20071105
  Receipt Date: 20071105
  Transmission Date: 20080405
  Serious: Yes (Other)
  Sender: FDA-Public Use
  Company Number: None

PATIENT
  Sex: Female
  Weight: 80.2867 kg

DRUGS (1)
  1. TAXOTERE [Suspect]
     Indication: BREAST CANCER
     Dosage: 143MG  EVERY 3 WEEKS   IV DRIP
     Route: 041
     Dates: start: 20070822, end: 20071024

REACTIONS (1)
  - HYPERSENSITIVITY [None]
